FAERS Safety Report 14723609 (Version 1)
Quarter: 2018Q2

REPORT INFORMATION
  Report Type: Spontaneous
  Country: DE (occurrence: DE)
  Receive Date: 20180405
  Receipt Date: 20180405
  Transmission Date: 20180711
  Serious: Yes (Hospitalization, Other)
  Sender: FDA-Public Use
  Company Number: DE-MYLANLABS-2018M1020362

PATIENT
  Age: 34 Month
  Sex: Male
  Weight: 12.2 kg

DRUGS (40)
  1. VINCRISTINE [Suspect]
     Active Substance: VINCRISTINE
     Dosage: DAILY DOSE: 0.8 MG MILLIGRAM(S) EVERY
     Route: 042
     Dates: start: 20160324
  2. VINCRISTINE [Suspect]
     Active Substance: VINCRISTINE
     Dosage: DAILY DOSE: 0.8 MG MILLIGRAM(S) EVERY
     Route: 042
     Dates: start: 20160627
  3. VINCRISTINE [Suspect]
     Active Substance: VINCRISTINE
     Dosage: DAILY DOSE: 0.8 MG MILLIGRAM(S) EVERY
     Route: 042
     Dates: start: 20160704
  4. IFOSFAMIDE. [Suspect]
     Active Substance: IFOSFAMIDE
     Indication: ACUTE LYMPHOCYTIC LEUKAEMIA
     Dosage: DAILY DOSE: 416 MG MILLIGRAM(S) EVERY DAY
     Route: 042
     Dates: start: 20160115, end: 20160117
  5. CYTARABINE. [Suspect]
     Active Substance: CYTARABINE
     Indication: ACUTE LYMPHOCYTIC LEUKAEMIA
     Dosage: 42 MG, UNK
     Route: 042
  6. METHOTREXATE. [Suspect]
     Active Substance: METHOTREXATE
     Indication: ACUTE LYMPHOCYTIC LEUKAEMIA
     Dosage: DAILY DOSE: 2700 MG MILLIGRAM(S) EVERY DAY
     Route: 042
     Dates: start: 20151218, end: 20151219
  7. ASPARAGINASE [Suspect]
     Active Substance: ASPARAGINASE
     Dosage: DAILY DOSE: 1300 IU INTERNATIONAL UNIT(S) EVERY DAY
     Route: 042
     Dates: start: 20160303
  8. CYTARABINE. [Suspect]
     Active Substance: CYTARABINE
     Indication: PHILADELPHIA CHROMOSOME POSITIVE
     Dosage: DAILY DOSE: 41 MG MILLIGRAM(S) EVERY DAY
     Route: 042
     Dates: start: 20151019, end: 20151222
  9. ASPARAGINASE [Suspect]
     Active Substance: ASPARAGINASE
     Indication: PHILADELPHIA CHROMOSOME POSITIVE
     Dosage: DAILY DOSE: 13500 IU INTERNATIONAL UNIT(S) EVERY DAY
     Route: 042
     Dates: start: 20151223, end: 20151223
  10. ASPARAGINASE [Suspect]
     Active Substance: ASPARAGINASE
     Dosage: DAILY DOSE: 13000 IU INTERNATIONAL UNIT(S) EVERY DAY
     Route: 042
     Dates: start: 20160209, end: 20160209
  11. VINCRISTINE [Suspect]
     Active Substance: VINCRISTINE
     Dosage: DAILY DOSE: 0.8 MG MILLIGRAM(S) EVERY
     Route: 042
     Dates: start: 20160620
  12. CYCLOPHOSPHAMIDE. [Suspect]
     Active Substance: CYCLOPHOSPHAMIDE
     Dosage: 560 MG, UNK
     Route: 042
     Dates: start: 20160416, end: 20160416
  13. CYCLOPHOSPHAMIDE. [Suspect]
     Active Substance: CYCLOPHOSPHAMIDE
     Dosage: 570 MG, UNK
     Route: 042
     Dates: start: 20160730, end: 20160730
  14. DOXORUBICIN [Suspect]
     Active Substance: DOXORUBICIN
     Indication: ACUTE LYMPHOCYTIC LEUKAEMIA
     Dosage: 13.5 MG, UNK
     Route: 042
  15. VINCRISTINE [Suspect]
     Active Substance: VINCRISTINE
     Indication: PHILADELPHIA CHROMOSOME POSITIVE
     Dosage: DAILY DOSE: 0.8 MG MILLIGRAM(S) EVERY
     Route: 042
     Dates: start: 20151218
  16. VINCRISTINE [Suspect]
     Active Substance: VINCRISTINE
     Dosage: DAILY DOSE: 0.8 MG MILLIGRAM(S) EVERY
     Route: 042
     Dates: start: 20160317
  17. CYCLOPHOSPHAMIDE. [Suspect]
     Active Substance: CYCLOPHOSPHAMIDE
     Indication: ACUTE LYMPHOCYTIC LEUKAEMIA
     Dosage: DAILY DOSE: 550 MG MILLIGRAM(S) EVERY DAY
     Route: 042
     Dates: start: 20151017, end: 20151017
  18. CYTARABINE. [Suspect]
     Active Substance: CYTARABINE
     Dosage: DAILY DOSE: 41 MG MILLIGRAM(S) EVERY DAY
     Route: 042
     Dates: start: 20151102, end: 20151105
  19. CYTARABINE. [Suspect]
     Active Substance: CYTARABINE
     Dosage: 1040 MG, UNK (4 APPLICATIONS TO 1040 MG)
     Route: 042
     Dates: start: 20160204, end: 20160206
  20. IMATINIB [Suspect]
     Active Substance: IMATINIB
     Indication: PHILADELPHIA CHROMOSOME POSITIVE
     Dosage: DAILY DOSE: 150 MG MILLIGRAM(S) EVERY DAY
     Route: 048
     Dates: start: 20150921, end: 20170307
  21. VINCRISTINE [Suspect]
     Active Substance: VINCRISTINE
     Indication: ACUTE LYMPHOCYTIC LEUKAEMIA
     Dosage: 1.6 MG, UNK
     Route: 042
  22. VINCRISTINE [Suspect]
     Active Substance: VINCRISTINE
     Dosage: DAILY DOSE: 0.8 MG MILLIGRAM(S) EVERY
     Route: 042
     Dates: start: 20151223, end: 20151223
  23. VINCRISTINE [Suspect]
     Active Substance: VINCRISTINE
     Dosage: 1.6 MG, UNK
     Route: 042
     Dates: start: 20160119, end: 20160119
  24. DAUNORUBICIN [Suspect]
     Active Substance: DAUNORUBICIN
     Indication: ACUTE LYMPHOCYTIC LEUKAEMIA
     Dosage: DAILY DOSE: 16 MG MILLIGRAM(S) EVERY DAY
     Route: 042
     Dates: start: 20160118
  25. DAUNORUBICIN [Suspect]
     Active Substance: DAUNORUBICIN
     Indication: PHILADELPHIA CHROMOSOME POSITIVE
  26. IFOSFAMIDE. [Suspect]
     Active Substance: IFOSFAMIDE
     Indication: PHILADELPHIA CHROMOSOME POSITIVE
  27. VINCRISTINE [Suspect]
     Active Substance: VINCRISTINE
     Dosage: DAILY DOSE: 0.8 MG MILLIGRAM(S) EVERY
     Route: 042
     Dates: start: 20160303, end: 20160303
  28. VINCRISTINE [Suspect]
     Active Substance: VINCRISTINE
     Dosage: DAILY DOSE: 0.8 MG MILLIGRAM(S) EVERY
     Route: 042
     Dates: start: 20160310
  29. CYCLOPHOSPHAMIDE. [Suspect]
     Active Substance: CYCLOPHOSPHAMIDE
     Indication: PHILADELPHIA CHROMOSOME POSITIVE
     Dosage: DAILY DOSE: 550 MG MILLIGRAM(S) EVERY DAY
     Route: 042
     Dates: start: 20151203, end: 20151203
  30. CYTARABINE. [Suspect]
     Active Substance: CYTARABINE
     Dosage: DAILY DOSE: 41 MG MILLIGRAM(S) EVERY DAY
     Route: 042
     Dates: start: 20151109, end: 20151112
  31. METHOTREXATE. [Suspect]
     Active Substance: METHOTREXATE
     Indication: PHILADELPHIA CHROMOSOME POSITIVE
     Dosage: DAILY DOSE: 2600 MG MILLIGRAM(S) EVERY DAY
     Route: 042
     Dates: start: 20160114, end: 20160115
  32. VINCRISTINE [Suspect]
     Active Substance: VINCRISTINE
     Dosage: DAILY DOSE: 0.8 MG MILLIGRAM(S) EVERY
     Route: 042
     Dates: start: 20160712
  33. ETOPOSIDE. [Suspect]
     Active Substance: ETOPOSIDE
     Indication: PHILADELPHIA CHROMOSOME POSITIVE
  34. CYTARABINE. [Suspect]
     Active Substance: CYTARABINE
     Dosage: DAILY DOSE: 41 MG MILLIGRAM(S) EVERY DAY
     Route: 042
     Dates: start: 20151026, end: 20151029
  35. CYTARABINE. [Suspect]
     Active Substance: CYTARABINE
     Dosage: DAILY DOSE: 2160 MG MILLIGRAM(S) EVERY DAY
     Route: 042
     Dates: start: 20151221
  36. IMATINIB [Suspect]
     Active Substance: IMATINIB
     Indication: ACUTE LYMPHOCYTIC LEUKAEMIA
  37. ASPARAGINASE [Suspect]
     Active Substance: ASPARAGINASE
     Indication: ACUTE LYMPHOCYTIC LEUKAEMIA
     Dosage: 5400 IU, UNK
     Route: 042
  38. DOXORUBICIN [Suspect]
     Active Substance: DOXORUBICIN
     Indication: PHILADELPHIA CHROMOSOME POSITIVE
  39. ETOPOSIDE. [Suspect]
     Active Substance: ETOPOSIDE
     Indication: ACUTE LYMPHOCYTIC LEUKAEMIA
     Dosage: 52 MG, UNK (5 APPLICATIONS TO 52 MG
     Route: 042
     Dates: start: 20160206, end: 20160208
  40. CYCLOPHOSPHAMIDE. [Suspect]
     Active Substance: CYCLOPHOSPHAMIDE
     Dosage: 110 MG, UNK (5 APPLICATIONS TO 110 MG)
     Route: 042
     Dates: start: 20151219, end: 20151221

REACTIONS (12)
  - Muscular weakness [Unknown]
  - Neutropenia [Recovered/Resolved]
  - Febrile neutropenia [Recovered/Resolved]
  - Stomatitis [Unknown]
  - Hypoxia [Unknown]
  - Constipation [Unknown]
  - Urinary tract infection [Unknown]
  - Pyrexia [Unknown]
  - Upper respiratory tract infection [Recovered/Resolved]
  - Infectious colitis [Unknown]
  - Lymphopenia [Unknown]
  - Pruritus [Unknown]

NARRATIVE: CASE EVENT DATE: 20151110
